FAERS Safety Report 7300045-8 (Version None)
Quarter: 2011Q1

REPORT INFORMATION
  Report Type: 
  Country: None (occurrence: None)
  Receive Date: 20110208
  Receipt Date: 20110128
  Transmission Date: 20110831
  Serious: Yes (Hospitalization)
  Sender: FDA-Public Use
  Company Number: 2011SP003511

PATIENT
  Age: 57 Year
  Sex: Male

DRUGS (2)
  1. PEG-INTRON [Suspect]
     Indication: HEPATITIS C
     Dosage: 1.5 MCG; QW; SC
     Route: 058
     Dates: start: 20100831, end: 20101206
  2. REBETOL [Suspect]
     Indication: HEPATITIS C
     Dosage: 600 MG; QD; PO
     Route: 048
     Dates: start: 20100831, end: 20101206

REACTIONS (5)
  - DYSPNOEA EXERTIONAL [None]
  - CHEST DISCOMFORT [None]
  - FAECES DISCOLOURED [None]
  - HAEMORRHAGE [None]
  - HAEMOGLOBIN DECREASED [None]
